FAERS Safety Report 5207911-8 (Version None)
Quarter: 2007Q1

REPORT INFORMATION
  Report Type: 
  Country: None (occurrence: None)
  Receive Date: 20070115
  Receipt Date: 20070104
  Transmission Date: 20070707
  Serious: Yes (Other)
  Sender: FDA-Public Use
  Company Number: US-JNJFOC-20061206084

PATIENT
  Sex: Female
  Weight: 77.11 kg

DRUGS (1)
  1. LEVAQUIN [Suspect]
     Indication: COUGH
     Route: 048

REACTIONS (2)
  - DYSPNOEA [None]
  - POLYMYALGIA RHEUMATICA [None]
